FAERS Safety Report 4423355-0 (Version None)
Quarter: 2004Q3

REPORT INFORMATION
  Report Type: 
  Country: None (occurrence: None)
  Receive Date: 20040806
  Receipt Date: 20040722
  Transmission Date: 20050211
  Serious: No
  Sender: FDA-Public Use
  Company Number: FLUV00304001915

PATIENT
  Age: 31 Year
  Sex: Female

DRUGS (6)
  1. FLUVOXAMINE MALEATE [Suspect]
     Indication: DEPRESSION
     Dosage: 25 MG DAILY PO
     Route: 048
     Dates: start: 20040528, end: 20040602
  2. RISE (CLOTIAZEPAM) [Concomitant]
  3. DEPAS (ETIZOLAM) [Concomitant]
  4. ALPRAZOLAM [Concomitant]
  5. ZANTAC [Concomitant]
  6. GASMOTIN (MOSAPRIDE CITRATE) [Concomitant]

REACTIONS (9)
  - ABDOMINAL PAIN [None]
  - ASTHENIA [None]
  - BLOOD POTASSIUM DECREASED [None]
  - HAEMATOCRIT DECREASED [None]
  - HAEMOGLOBIN DECREASED [None]
  - HEPATIC ENZYME INCREASED [None]
  - INAPPROPRIATE ANTIDIURETIC HORMONE SECRETION [None]
  - MALAISE [None]
  - RED BLOOD CELL COUNT DECREASED [None]
